FAERS Safety Report 15172379 (Version 2)
Quarter: 2018Q3

REPORT INFORMATION
  Report Type: Report from Study
  Country: US (occurrence: US)
  Receive Date: 20180720
  Receipt Date: 20180822
  Transmission Date: 20181010
  Serious: Yes (Hospitalization)
  Sender: FDA-Public Use
  Company Number: US-JNJFOC-20180723713

PATIENT
  Age: 75 Year
  Sex: Female

DRUGS (11)
  1. GABAPENTIN. [Concomitant]
     Active Substance: GABAPENTIN
  2. METFORMIN [Concomitant]
     Active Substance: METFORMIN HYDROCHLORIDE
  3. IMBRUVICA [Suspect]
     Active Substance: IBRUTINIB
     Indication: CHRONIC LYMPHOCYTIC LEUKAEMIA
     Route: 048
     Dates: start: 20180511
  4. VITAMIN D [Concomitant]
     Active Substance: CHOLECALCIFEROL
  5. DILTIAZEM. [Concomitant]
     Active Substance: DILTIAZEM
  6. AMITRIPTYLIN [Concomitant]
     Active Substance: AMITRIPTYLINE
  7. ASPIRIN. [Concomitant]
     Active Substance: ASPIRIN
  8. PRAVASTATIN. [Concomitant]
     Active Substance: PRAVASTATIN
  9. AMBIEN [Concomitant]
     Active Substance: ZOLPIDEM TARTRATE
  10. ALLOPURINOL. [Concomitant]
     Active Substance: ALLOPURINOL
  11. CLONIDINE. [Concomitant]
     Active Substance: CLONIDINE

REACTIONS (5)
  - Escherichia infection [Unknown]
  - Peripheral swelling [Unknown]
  - Hospitalisation [Unknown]
  - Nephrolithiasis [Unknown]
  - Pollakiuria [Unknown]

NARRATIVE: CASE EVENT DATE: 201806
